FAERS Safety Report 7487340-7 (Version None)
Quarter: 2011Q2

REPORT INFORMATION
  Report Type: 
  Country: None (occurrence: None)
  Receive Date: 20110518
  Receipt Date: 20110509
  Transmission Date: 20111010
  Serious: Yes (Other)
  Sender: FDA-Public Use
  Company Number: US-SP-2011-02697

PATIENT
  Age: 2 Year
  Sex: Male

DRUGS (1)
  1. TUBERSOL [Suspect]
     Indication: TUBERCULIN TEST
     Route: 023

REACTIONS (3)
  - INJECTION SITE INDURATION [None]
  - LATENT TUBERCULOSIS [None]
  - CHEST X-RAY ABNORMAL [None]
